FAERS Safety Report 12570672 (Version 1)
Quarter: 2016Q3

REPORT INFORMATION
  Report Type: Spontaneous
  Country: IT (occurrence: IT)
  Receive Date: 20160719
  Receipt Date: 20160719
  Transmission Date: 20161109
  Serious: Yes (Other)
  Sender: FDA-Public Use
  Company Number: IT-ELI_LILLY_AND_COMPANY-IT201607003201

PATIENT
  Age: 81 Year
  Sex: Female

DRUGS (4)
  1. DIBASE [Concomitant]
     Active Substance: CHOLECALCIFEROL
     Dosage: 100000 DF, UNK
     Route: 058
  2. CACIT                              /07357001/ [Concomitant]
     Active Substance: CALCIUM\VITAMIN D
     Dosage: 1000 MG, UNK
  3. FORSTEO [Suspect]
     Active Substance: TERIPARATIDE
     Indication: SPINAL FRACTURE
     Dosage: 20 UG, QD
     Route: 058
     Dates: start: 20160525, end: 20160620
  4. FORSTEO [Suspect]
     Active Substance: TERIPARATIDE
     Dosage: 20 UG, QOD

REACTIONS (5)
  - Headache [Recovered/Resolved]
  - Off label use [Unknown]
  - Asthenia [Recovered/Resolved]
  - Spinal pain [Recovered/Resolved]
  - Arthralgia [Recovered/Resolved]

NARRATIVE: CASE EVENT DATE: 20160525
